FAERS Safety Report 4869317-0 (Version None)
Quarter: 2005Q4

REPORT INFORMATION
  Report Type: 
  Country: None (occurrence: None)
  Receive Date: 20051228
  Receipt Date: 20051228
  Transmission Date: 20060501
  Serious: No
  Sender: FDA-Public Use
  Company Number: None

PATIENT
  Age: 25 Year
  Sex: Female
  Weight: 64.8644 kg

DRUGS (2)
  1. VIVELLE [Suspect]
     Indication: HORMONE REPLACEMENT THERAPY
  2. VIVELLE [Suspect]
     Indication: HYSTERECTOMY

REACTIONS (2)
  - DERMATITIS CONTACT [None]
  - METRORRHAGIA [None]
